FAERS Safety Report 25623250 (Version 1)
Quarter: 2025Q3

REPORT INFORMATION
  Report Type: Spontaneous
  Country: EU (occurrence: EU)
  Receive Date: 20250730
  Receipt Date: 20250730
  Transmission Date: 20251021
  Serious: Yes (Death, Hospitalization, Other)
  Sender: GILEAD
  Company Number: None

PATIENT
  Age: 56 Year
  Sex: Male
  Weight: 91 kg

DRUGS (6)
  1. YESCARTA [Suspect]
     Active Substance: AXICABTAGENE CILOLEUCEL
     Indication: Diffuse large B-cell lymphoma stage IV
     Route: 042
     Dates: start: 20250604, end: 20250604
  2. DEXAMETHASONE [Concomitant]
     Active Substance: DEXAMETHASONE
     Indication: Immune effector cell-associated neurotoxicity syndrome
     Route: 042
     Dates: start: 20250608, end: 20250624
  3. DEXAMETHASONE [Concomitant]
     Active Substance: DEXAMETHASONE
     Indication: Cytokine release syndrome
  4. ANAKINRA [Concomitant]
     Active Substance: ANAKINRA
     Indication: Immune effector cell-associated neurotoxicity syndrome
     Route: 058
     Dates: start: 20250618, end: 20250623
  5. FILGRASTIM [Concomitant]
     Active Substance: FILGRASTIM
     Indication: Immune effector cell-associated haematotoxicity
     Route: 058
     Dates: start: 20250620, end: 20250624
  6. LEVETIRACETAM [Concomitant]
     Active Substance: LEVETIRACETAM
     Indication: Immune effector cell-associated neurotoxicity syndrome
     Route: 048
     Dates: start: 20250613, end: 20250624

REACTIONS (4)
  - Immune effector cell-associated neurotoxicity syndrome [Fatal]
  - Immune effector cell-associated haematotoxicity [Not Recovered/Not Resolved]
  - Cytokine release syndrome [Recovered/Resolved]
  - Immune effector cell-associated neurotoxicity syndrome [Recovered/Resolved]

NARRATIVE: CASE EVENT DATE: 20250610
